FAERS Safety Report 23716110 (Version 3)
Quarter: 2024Q2

REPORT INFORMATION
  Report Type: Spontaneous
  Country: VN (occurrence: VN)
  Receive Date: 20240408
  Receipt Date: 20240507
  Transmission Date: 20240716
  Serious: Yes (Death, Other)
  Sender: FDA-Public Use
  Company Number: VN-JNJFOC-20240417661

PATIENT
  Age: 7 Decade
  Sex: Male

DRUGS (3)
  1. DARZALEX [Suspect]
     Active Substance: DARATUMUMAB
     Indication: Plasma cell myeloma
     Dosage: 2 CYCLES
     Route: 065
     Dates: start: 202307
  2. VELCADE [Suspect]
     Active Substance: BORTEZOMIB
     Indication: Plasma cell myeloma
     Dosage: 2 CYCLES
     Route: 065
     Dates: start: 202307
  3. DEXAMETHASONE [Suspect]
     Active Substance: DEXAMETHASONE
     Indication: Plasma cell myeloma
     Dosage: 2 CYCLES
     Route: 065
     Dates: start: 202307

REACTIONS (3)
  - Death [Fatal]
  - Plasma cell myeloma [Unknown]
  - Drug ineffective [Unknown]
